FAERS Safety Report 5218595-7 (Version None)
Quarter: 2007Q1

REPORT INFORMATION
  Report Type: 
  Country: None (occurrence: None)
  Receive Date: 20061130
  Receipt Date: 20060905
  Transmission Date: 20070707
  Serious: Yes (Hospitalization)
  Sender: FDA-Public Use
  Company Number: US200606003053

PATIENT
  Age: 46 Year
  Sex: Male
  Weight: 105.7 kg

DRUGS (4)
  1. ZYPREXA [Suspect]
     Dates: start: 20010101, end: 20040101
  2. MIRTAZAPINE [Concomitant]
  3. PAXIL [Concomitant]
  4. ZOLOFT [Concomitant]

REACTIONS (10)
  - BACK PAIN [None]
  - BILIARY TRACT DISORDER [None]
  - BLOOD CHOLESTEROL INCREASED [None]
  - BLOOD DISORDER [None]
  - BLOOD TRIGLYCERIDES INCREASED [None]
  - DIABETES MELLITUS [None]
  - HYPERTENSION [None]
  - METABOLIC DISORDER [None]
  - OBESITY [None]
  - SUICIDAL BEHAVIOUR [None]
